FAERS Safety Report 4977796-3 (Version None)
Quarter: 2006Q1

REPORT INFORMATION
  Report Type: 
  Country: None (occurrence: None)
  Receive Date: 20060215
  Receipt Date: 20050321
  Transmission Date: 20060701
  Serious: Yes (Death, Other)
  Sender: FDA-Public Use
  Company Number: MC200500293

PATIENT
  Age: 96 Year
  Sex: Male

DRUGS (1)
  1. ANGIOMAX [Suspect]
     Indication: CORONARY ARTERY SURGERY

REACTIONS (2)
  - HAEMORRHAGE [None]
  - RENAL IMPAIRMENT [None]
